FAERS Safety Report 24959765 (Version 1)
Quarter: 2025Q1

REPORT INFORMATION
  Report Type: Spontaneous
  Country: US (occurrence: None)
  Receive Date: 20250211
  Receipt Date: 20250211
  Transmission Date: 20250409
  Serious: Yes (Other)
  Sender: FDA-CTU
  Company Number: None

PATIENT
  Age: 56 Year
  Sex: Female

DRUGS (1)
  1. REPATHA [Suspect]
     Active Substance: EVOLOCUMAB
     Indication: Hyperlipidaemia
     Route: 058
     Dates: start: 20241218, end: 20250201

REACTIONS (2)
  - Post procedural complication [None]
  - Injection site urticaria [None]

NARRATIVE: CASE EVENT DATE: 20241218
